FAERS Safety Report 23723634 (Version 2)
Quarter: 2024Q2

REPORT INFORMATION
  Report Type: Spontaneous
  Country: US (occurrence: US)
  Receive Date: 20240409
  Receipt Date: 20240513
  Transmission Date: 20240716
  Serious: Yes (Other)
  Sender: FDA-Public Use
  Company Number: US-AMGEN-USASP2024069674

PATIENT
  Age: 74 Year
  Sex: Female

DRUGS (4)
  1. ENBREL [Suspect]
     Active Substance: BENZYL ALCOHOL\ETANERCEPT
     Indication: Product used for unknown indication
     Dosage: 50 MILLIGRAM, QWK
     Route: 058
     Dates: start: 2014, end: 2021
  2. ENBREL [Suspect]
     Active Substance: BENZYL ALCOHOL\ETANERCEPT
     Dosage: 50 MILLIGRAM, QWK
     Route: 058
     Dates: start: 2022
  3. HUMIRA [Concomitant]
     Active Substance: ADALIMUMAB
     Indication: Product used for unknown indication
     Dosage: 50 MILLIGRAM, QWK
     Route: 058
     Dates: start: 202104, end: 202204
  4. ATENOLOL [Concomitant]
     Active Substance: ATENOLOL
     Dosage: UNK

REACTIONS (10)
  - Cutaneous T-cell lymphoma [Unknown]
  - Rheumatoid arthritis [Unknown]
  - Retinal vein thrombosis [Unknown]
  - Non-Hodgkin^s lymphoma [Unknown]
  - Osteoarthritis [Unknown]
  - Hand deformity [Unknown]
  - Device difficult to use [Unknown]
  - Osteoporosis [Unknown]
  - Joint range of motion decreased [Unknown]
  - Rash [Unknown]

NARRATIVE: CASE EVENT DATE: 20210101
